FAERS Safety Report 11807326 (Version 1)
Quarter: 2015Q4

REPORT INFORMATION
  Report Type: Spontaneous
  Country: CH (occurrence: CH)
  Receive Date: 20151207
  Receipt Date: 20151207
  Transmission Date: 20160305
  Serious: Yes (Other)
  Sender: FDA-Public Use
  Company Number: CH-JNJFOC-20150516099

PATIENT
  Sex: Female

DRUGS (1)
  1. SYLVANT [Suspect]
     Active Substance: SILTUXIMAB
     Indication: CASTLEMAN^S DISEASE
     Route: 065
     Dates: start: 20150507

REACTIONS (4)
  - Night sweats [Unknown]
  - Arthralgia [Unknown]
  - Adrenal insufficiency [Unknown]
  - Fatigue [Unknown]
